FAERS Safety Report 9352190 (Version 1)
Quarter: 2013Q2

REPORT INFORMATION
  Report Type: Spontaneous
  Country: US (occurrence: None)
  Receive Date: 20130612
  Receipt Date: 20130612
  Transmission Date: 20140414
  Serious: Yes (Hospitalization)
  Sender: FDA-Public Use
  Company Number: 2013AP005866

PATIENT
  Age: 77 Year
  Sex: Female

DRUGS (7)
  1. ALENDRONATE (ALENDRONATE SODIUM) [Suspect]
     Indication: OSTEOPOROSIS
     Route: 048
     Dates: start: 2001, end: 20130516
  2. CODEINE (CODEINE) [Concomitant]
  3. DOSULEPIN (DOSULEPIN) [Concomitant]
  4. GABAPENTIN (GABAPENTIN) [Concomitant]
  5. LANSOPRAZOLE (LANSOPRAZOLE) [Concomitant]
  6. PARACETAMOL (PARACETAMOL) [Concomitant]
  7. PROPRANOLOL (PROPRANOLOL) [Concomitant]

REACTIONS (4)
  - Atypical femur fracture [None]
  - Bone disorder [None]
  - Groin pain [None]
  - Pain in extremity [None]
